FAERS Safety Report 9027730 (Version 1)
Quarter: 2013Q1

REPORT INFORMATION
  Report Type: Spontaneous
  Country: ES (occurrence: ES)
  Receive Date: 20130123
  Receipt Date: 20130123
  Transmission Date: 20140127
  Serious: Yes (Other)
  Sender: FDA-Public Use
  Company Number: ES-BRISTOL-MYERS SQUIBB COMPANY-17199910

PATIENT
  Age: 75 Year
  Sex: Male

DRUGS (3)
  1. ELIQUIS [Suspect]
     Indication: THROMBOSIS PROPHYLAXIS
     Dosage: 23DEC2012
     Route: 048
     Dates: start: 20121023, end: 20121212
  2. OMNIC [Concomitant]
     Indication: BENIGN PROSTATIC HYPERPLASIA
  3. ENALAPRIL [Concomitant]
     Indication: HYPERTENSION

REACTIONS (3)
  - Deep vein thrombosis [Recovered/Resolved with Sequelae]
  - Decreased appetite [Unknown]
  - Nausea [Unknown]
